FAERS Safety Report 18428808 (Version 1)
Quarter: 2020Q4

REPORT INFORMATION
  Report Type: Report from Study
  Country: None (occurrence: IL)
  Receive Date: 20201027
  Receipt Date: 20201027
  Transmission Date: 20210114
  Serious: Yes (Hospitalization, Other)
  Sender: FDA-Public Use
  Company Number: IL-ABBVIE-20K-082-3620018-00

PATIENT
  Age: 75 Year
  Sex: Male
  Weight: 68 kg

DRUGS (26)
  1. RITUXIMAB. [Suspect]
     Active Substance: RITUXIMAB
     Dosage: 600 MG CYCLE NUMBER 4
     Route: 065
     Dates: start: 20200127, end: 20200127
  2. RITUXIMAB. [Suspect]
     Active Substance: RITUXIMAB
     Dosage: 600 MG CYCLE NUMBER 6
     Route: 065
     Dates: start: 20200325, end: 20200325
  3. OMNIC [Concomitant]
     Active Substance: TAMSULOSIN HYDROCHLORIDE
     Indication: BENIGN PROSTATIC HYPERPLASIA
     Dates: start: 20180107
  4. PREDNISONE. [Concomitant]
     Active Substance: PREDNISONE
     Indication: THROMBOCYTOPENIA
     Dates: start: 20200422, end: 20200518
  5. RITUXIMAB. [Suspect]
     Active Substance: RITUXIMAB
     Indication: PRODUCT USED FOR UNKNOWN INDICATION
     Dosage: 600 MG CYCLE NUMBER 1
     Route: 065
     Dates: start: 20191028, end: 20191028
  6. RITUXIMAB. [Suspect]
     Active Substance: RITUXIMAB
     Dosage: 600 MG CYCLE NUMBER 5
     Route: 065
     Dates: start: 20200224, end: 20200224
  7. VENETOCLAX. [Suspect]
     Active Substance: VENETOCLAX
     Indication: CHRONIC LYMPHOCYTIC LEUKAEMIA
     Dosage: 20 MG, DOSE INCREASE ACCORDING TO VENETOCLAX DOSE TITRATION SCHEME
     Route: 048
     Dates: start: 20190408, end: 20190415
  8. VENETOCLAX. [Suspect]
     Active Substance: VENETOCLAX
     Dosage: 50 MG
     Route: 048
     Dates: start: 20190416, end: 20190422
  9. ASPIRIN. [Concomitant]
     Active Substance: ASPIRIN
     Indication: PROPHYLAXIS
     Dates: start: 20160525, end: 20200601
  10. RITUXIMAB. [Suspect]
     Active Substance: RITUXIMAB
     Dosage: 600 MG CYCLE NUMBER 7
     Route: 065
     Dates: start: 20200422
  11. NYSTATINE [Concomitant]
     Indication: PROPHYLAXIS
     Dates: start: 20200602
  12. VENETOCLAX. [Suspect]
     Active Substance: VENETOCLAX
     Dosage: 200 MG
     Route: 048
     Dates: start: 20190429, end: 20190505
  13. VENETOCLAX. [Suspect]
     Active Substance: VENETOCLAX
     Dosage: 400 MG
     Route: 048
     Dates: start: 20190506, end: 20200504
  14. RITUXIMAB. [Suspect]
     Active Substance: RITUXIMAB
     Dosage: 600 MG CYCLE NUMBER 2
     Route: 065
     Dates: start: 20191125, end: 20191125
  15. TAMIFLU [Concomitant]
     Active Substance: OSELTAMIVIR PHOSPHATE
     Indication: INFLUENZA
     Dates: start: 20200112, end: 202001
  16. IVIGLOB EX [Concomitant]
     Active Substance: HUMAN IMMUNOGLOBULIN G
     Indication: THROMBOCYTOPENIA
     Dates: start: 20200511, end: 20200512
  17. CARTIA [Concomitant]
     Indication: PROPHYLAXIS
     Dates: start: 20121120
  18. VENETOCLAX. [Suspect]
     Active Substance: VENETOCLAX
     Dosage: 100 MG
     Route: 048
     Dates: start: 20190423, end: 20190428
  19. TEVAGRASTIM [Concomitant]
     Active Substance: FILGRASTIM
     Indication: NEUTROPENIA
     Dates: start: 20200830
  20. OFLOXACIN. [Concomitant]
     Active Substance: OFLOXACIN
     Indication: PROPHYLAXIS
     Dosage: EYE DROPS
     Dates: start: 20180516
  21. TEVAGRASTIM [Concomitant]
     Active Substance: FILGRASTIM
     Indication: NEUTROPENIA
     Dates: start: 20190918
  22. PREDNISONE. [Concomitant]
     Active Substance: PREDNISONE
     Dates: start: 20200602
  23. RITUXIMAB. [Suspect]
     Active Substance: RITUXIMAB
     Dosage: 600 MG CYCLE NUMBER 3
     Route: 065
     Dates: start: 20191223, end: 20191223
  24. LIPITOR [Concomitant]
     Active Substance: ATORVASTATIN CALCIUM
     Indication: HYPERCHOLESTEROLAEMIA
     Dates: start: 20190219
  25. REVOLADE [Concomitant]
     Active Substance: ELTROMBOPAG
     Indication: THROMBOCYTOPENIA
     Dates: start: 20200518
  26. LANTON [Concomitant]
     Indication: PROPHYLAXIS
     Dates: start: 20131013

REACTIONS (6)
  - Pyrexia [Recovered/Resolved]
  - Influenza [Recovered/Resolved]
  - Neutropenia [Recovered/Resolved]
  - Myelodysplastic syndrome [Not Recovered/Not Resolved]
  - Pneumonitis [Not Recovered/Not Resolved]
  - Neutropenia [Not Recovered/Not Resolved]

NARRATIVE: CASE EVENT DATE: 20190529
